FAERS Safety Report 4551900-3 (Version None)
Quarter: 2005Q1

REPORT INFORMATION
  Report Type: 
  Country: None (occurrence: None)
  Receive Date: 20050107
  Receipt Date: 20041223
  Transmission Date: 20050727
  Serious: Yes (Hospitalization)
  Sender: FDA-Public Use
  Company Number: F01200404029

PATIENT
  Age: 47 Year
  Sex: Male

DRUGS (5)
  1. CAPECITABINE [Suspect]
     Indication: GASTROOESOPHAGEAL CANCER
     Dosage: 1150 MG (500 MG/M2 TWICE DAILY Q3W)
     Route: 048
     Dates: end: 20041121
  2. EPIRUBICIN [Suspect]
     Dosage: 50 MG/M2 Q3W
     Route: 040
     Dates: start: 20041121, end: 20041121
  3. CISPLATIN [Suspect]
     Dosage: 60 MG/M2 Q3W
     Route: 042
     Dates: start: 20041121, end: 20041121
  4. LANSOPRAZOLE [Concomitant]
  5. ADALAT CC [Concomitant]

REACTIONS (4)
  - AMNESIA [None]
  - CEREBRAL INFARCTION [None]
  - CEREBROVASCULAR ACCIDENT [None]
  - DYSPRAXIA [None]
